FAERS Safety Report 24814983 (Version 4)
Quarter: 2025Q4

REPORT INFORMATION
  Report Type: Report from Study
  Country: US (occurrence: US)
  Receive Date: 20250107
  Receipt Date: 20251021
  Transmission Date: 20260117
  Serious: Yes (Life-Threatening, Hospitalization, Other)
  Sender: BOEHRINGER INGELHEIM
  Company Number: US-BoehringerIngelheim-2024-BI-055076

PATIENT
  Age: 66 Year
  Sex: Female

DRUGS (5)
  1. OFEV [Suspect]
     Active Substance: NINTEDANIB
     Indication: Idiopathic pulmonary fibrosis
  2. OFEV [Suspect]
     Active Substance: NINTEDANIB
     Indication: Systemic sclerosis pulmonary
     Dates: start: 2020
  3. OFEV [Suspect]
     Active Substance: NINTEDANIB
     Indication: Interstitial lung disease
  4. AMBRISENTAN [Concomitant]
     Active Substance: AMBRISENTAN
     Indication: Product used for unknown indication
  5. ELIQUIS [Concomitant]
     Active Substance: APIXABAN
     Indication: Product used for unknown indication

REACTIONS (24)
  - Large intestinal haemorrhage [Recovered/Resolved]
  - Arteriovenous malformation [Recovered/Resolved]
  - Haematochezia [Unknown]
  - Epistaxis [Unknown]
  - Anaemia [Recovered/Resolved]
  - Pulmonary hypertension [Unknown]
  - Palpitations [Recovered/Resolved]
  - Anxiety [Recovered/Resolved]
  - Dyspnoea [Recovered/Resolved]
  - Endarterectomy [Unknown]
  - Anaemia [Unknown]
  - Pain in extremity [Unknown]
  - Insomnia [Unknown]
  - Brain fog [Unknown]
  - Sarcopenia [Unknown]
  - Arthralgia [Unknown]
  - Panic attack [Unknown]
  - Intestinal cyst [Recovering/Resolving]
  - Diarrhoea [Recovered/Resolved]
  - Memory impairment [Not Recovered/Not Resolved]
  - Cough [Not Recovered/Not Resolved]
  - Rhinorrhoea [Not Recovered/Not Resolved]
  - Decreased activity [Unknown]
  - Lung disorder [Unknown]

NARRATIVE: CASE EVENT DATE: 20251014
